FAERS Safety Report 22346172 (Version 1)
Quarter: 2023Q2

REPORT INFORMATION
  Report Type: Spontaneous
  Country: NO (occurrence: NO)
  Receive Date: 20230519
  Receipt Date: 20230519
  Transmission Date: 20230722
  Serious: Yes (Other)
  Sender: FDA-Public Use
  Company Number: NO-ABBVIE-4769405

PATIENT

DRUGS (3)
  1. AZACITIDINE [Suspect]
     Active Substance: AZACITIDINE
     Indication: Acute myeloid leukaemia
  2. VENETOCLAX [Suspect]
     Active Substance: VENETOCLAX
     Indication: Acute myeloid leukaemia
     Dosage: TOTAL FOUR WEEKS VENETOCLAX WITHIN 12 WEEKS
  3. VENETOCLAX [Suspect]
     Active Substance: VENETOCLAX
     Dosage: FIRST CYCLE: 14 DAYS. SECOND CYCLE: 7 DAYS.  THIRD CYCLE: 7 WEEKS.
     Route: 048

REACTIONS (3)
  - Cytopenia [Unknown]
  - Acute myeloid leukaemia [Unknown]
  - Neutropenic colitis [Unknown]
